FAERS Safety Report 12858615 (Version 1)
Quarter: 2016Q4

REPORT INFORMATION
  Report Type: Spontaneous
  Country: US (occurrence: US)
  Receive Date: 20161018
  Receipt Date: 20161018
  Transmission Date: 20170207
  Serious: Yes (Hospitalization)
  Sender: FDA-Public Use
  Company Number: US-ASTRAZENECA-2016SF08169

PATIENT
  Age: 51 Year
  Sex: Male
  Weight: 59 kg

DRUGS (9)
  1. EFFEXOR [Concomitant]
     Active Substance: VENLAFAXINE HYDROCHLORIDE
  2. SEROQUEL [Suspect]
     Active Substance: QUETIAPINE FUMARATE
     Indication: SLEEP DISORDER
     Dosage: GENERIC
     Route: 065
  3. TIVICAY [Concomitant]
     Active Substance: DOLUTEGRAVIR SODIUM
     Indication: HIV INFECTION
     Dates: start: 2016
  4. BENZODIAZEPINES [Concomitant]
     Active Substance: BENZODIAZEPINE
  5. XANAX [Concomitant]
     Active Substance: ALPRAZOLAM
  6. TRUVADA [Concomitant]
     Active Substance: EMTRICITABINE\TENOFOVIR DISOPROXIL FUMARATE
     Indication: HIV INFECTION
  7. RESTORIL [Concomitant]
     Active Substance: TEMAZEPAM
  8. LAMICTAL [Concomitant]
     Active Substance: LAMOTRIGINE
  9. SEROQUEL [Suspect]
     Active Substance: QUETIAPINE FUMARATE
     Indication: SLEEP DISORDER
     Route: 048

REACTIONS (7)
  - Memory impairment [Unknown]
  - Bipolar disorder [Recovered/Resolved]
  - Serotonin syndrome [Unknown]
  - Fluid retention [Unknown]
  - Off label use [Unknown]
  - Blood pressure increased [Unknown]
  - Product use issue [Unknown]

NARRATIVE: CASE EVENT DATE: 2012
